FAERS Safety Report 9498739 (Version 2)
Quarter: 2013Q4

REPORT INFORMATION
  Report Type: Spontaneous
  Country: US (occurrence: US)
  Receive Date: 20130904
  Receipt Date: 20131029
  Transmission Date: 20140711
  Serious: No
  Sender: FDA-Public Use
  Company Number: US-BAXTER-2013BAX032703

PATIENT
  Age: 78 Year
  Sex: Male
  Weight: 70.1 kg

DRUGS (1)
  1. CLINIMIX E? -SULFITE-FREE (AMINO ACID WITH ELECTROLYTES IN DEXTROSE WI [Suspect]
     Indication: PARENTERAL NUTRITION
     Route: 042
     Dates: start: 20130813, end: 20130815

REACTIONS (2)
  - Drug administration error [Recovered/Resolved]
  - Extravasation [Recovered/Resolved]
